FAERS Safety Report 17578888 (Version 1)
Quarter: 2020Q1

REPORT INFORMATION
  Report Type: Spontaneous
  Country: TR (occurrence: TR)
  Receive Date: 20200325
  Receipt Date: 20200325
  Transmission Date: 20200409
  Serious: Yes (Death, Life-Threatening, Other)
  Sender: FDA-Public Use
  Company Number: TR-SUN PHARMACEUTICAL INDUSTRIES LTD-2020R1-241137

PATIENT
  Age: 29 Year
  Sex: Male

DRUGS (1)
  1. CLOZAPINE. [Suspect]
     Active Substance: CLOZAPINE
     Indication: SCHIZOPHRENIA
     Dosage: 200MG, UNK
     Route: 065

REACTIONS (8)
  - Altered state of consciousness [Unknown]
  - Intestinal ischaemia [Unknown]
  - Metabolic acidosis [Unknown]
  - Respiratory distress [Unknown]
  - Cardiac arrest [Fatal]
  - Hypotension [Unknown]
  - Sepsis [Unknown]
  - Intestinal pseudo-obstruction [Unknown]
